FAERS Safety Report 21023852 (Version 2)
Quarter: 2022Q3

REPORT INFORMATION
  Report Type: Spontaneous
  Country: US (occurrence: US)
  Receive Date: 20220629
  Receipt Date: 20220726
  Transmission Date: 20221026
  Serious: Yes (Hospitalization)
  Sender: FDA-Public Use
  Company Number: US-CMP PHARMA-2022CMP00013

PATIENT
  Sex: Female
  Weight: 76.19 kg

DRUGS (20)
  1. SPS [Suspect]
     Active Substance: SODIUM POLYSTYRENE SULFONATE
     Indication: Hyperkalaemia
     Dosage: 120 ML, AS A ONE TIME DOSE
     Route: 048
     Dates: start: 20220608, end: 20220608
  2. ASPIRIN [Concomitant]
     Active Substance: ASPIRIN
     Dosage: 81 MG, 1X/DAY
     Route: 048
  3. PANTOPRAZOLE [Concomitant]
     Active Substance: PANTOPRAZOLE
     Dosage: 40 MG, 1X/DAY
     Route: 048
  4. DULOXETINE [Concomitant]
     Active Substance: DULOXETINE
     Dosage: 60 MG, 1X/DAY
     Route: 048
  5. PREGABALIN [Concomitant]
     Active Substance: PREGABALIN
     Dosage: 100 MG, 2X/DAY
     Route: 048
  6. ATORVASTATIN [Concomitant]
     Active Substance: ATORVASTATIN
     Dosage: 20 MG, 1X/DAY, AT BEDTIME
     Route: 048
  7. LUBIPROSTONE [Concomitant]
     Active Substance: LUBIPROSTONE
     Dosage: 24 ?G, 2X/DAY WITH FOOD
     Route: 048
  8. LINAGLIPTIN [Concomitant]
     Active Substance: LINAGLIPTIN
     Dosage: 5 MG, 1X/DAY
     Route: 048
  9. EMPAGLIFLOZIN [Concomitant]
     Active Substance: EMPAGLIFLOZIN
     Dosage: 10 MG, 1X/DAY
     Route: 048
  10. FUROSEMIDE [Concomitant]
     Active Substance: FUROSEMIDE
     Dosage: 20 MG, 1X/DAY
     Route: 048
  11. CARVEDILOL [Concomitant]
     Active Substance: CARVEDILOL
     Dosage: 3.125 MG, 2X/DAY
     Route: 048
  12. INSULIN GLARGINE [Concomitant]
     Active Substance: INSULIN GLARGINE
     Dosage: 0.4 ML, 2X/DAY
     Route: 058
  13. LACTULOSE [Concomitant]
     Active Substance: LACTULOSE
     Dosage: 15 ML, 2X/DAY
     Route: 048
  14. VITAMINS [Concomitant]
     Active Substance: VITAMINS
     Dosage: 1 TABLETS, 1X/DAY
     Route: 048
  15. HYDROXYZINE HYDROCHLORIDE [Concomitant]
     Active Substance: HYDROXYZINE HYDROCHLORIDE
     Dosage: 25 MG, 3X/DAY AS NEEDED
     Route: 048
  16. MECLIZINE HYDROCHLORIDE [Concomitant]
     Active Substance: MECLIZINE HYDROCHLORIDE
     Dosage: 25 MG, 2X/DAY AS NEEDED
     Route: 048
  17. INSULIN ASPART [Concomitant]
     Active Substance: INSULIN ASPART
     Dosage: 0.1 ML, 2X/DAY BEFORE MEALS
     Route: 058
  18. ALLOPURINOL [Concomitant]
     Active Substance: ALLOPURINOL
     Dosage: 100 MG, 1X/DAY
     Route: 048
  19. ALDACTONE [Concomitant]
     Active Substance: SPIRONOLACTONE
  20. LOSARTAN [Concomitant]
     Active Substance: LOSARTAN

REACTIONS (1)
  - Urticaria [Unknown]
